FAERS Safety Report 16746713 (Version 1)
Quarter: 2019Q3

REPORT INFORMATION
  Report Type: Report from Study
  Country: US (occurrence: US)
  Receive Date: 20190827
  Receipt Date: 20190827
  Transmission Date: 20191005
  Serious: Yes (Hospitalization)
  Sender: FDA-Public Use
  Company Number: US-ROCHE-2354186

PATIENT
  Age: 55 Year
  Sex: Female
  Weight: 86.26 kg

DRUGS (11)
  1. GABAPENTIN. [Concomitant]
     Active Substance: GABAPENTIN
     Indication: NEURALGIA
     Dosage: ONGOING : YES, 2 CAPSULES
     Route: 048
     Dates: start: 201806
  2. CYMBALTA [Concomitant]
     Active Substance: DULOXETINE HYDROCHLORIDE
     Indication: DEPRESSION
     Dosage: ONGOING : YES
     Route: 048
     Dates: start: 201806
  3. ESTRACE [Concomitant]
     Active Substance: ESTRADIOL
     Indication: HYSTERECTOMY
     Dosage: ONGOING : YES
     Route: 048
     Dates: start: 1994
  4. OXYBUTYNIN. [Concomitant]
     Active Substance: OXYBUTYNIN CHLORIDE
     Dosage: ONGOING: YES
     Route: 048
  5. BETAFERON [Concomitant]
     Active Substance: INTERFERON BETA-1B
     Route: 065
     Dates: start: 201809, end: 201810
  6. BACLOFEN. [Concomitant]
     Active Substance: BACLOFEN
     Indication: MUSCLE SPASMS
     Dosage: ONGOING : YES
     Route: 048
     Dates: start: 201806
  7. ADDERALL [Concomitant]
     Active Substance: AMPHETAMINE ASPARTATE\AMPHETAMINE SULFATE\DEXTROAMPHETAMINE SACCHARATE\DEXTROAMPHETAMINE SULFATE
     Indication: DEPRESSION
     Dosage: ONGOING : YES, 30 MG IN MORNING, 30 IN NOON
     Route: 048
     Dates: start: 1995
  8. OCREVUS [Suspect]
     Active Substance: OCRELIZUMAB
     Indication: PRIMARY PROGRESSIVE MULTIPLE SCLEROSIS
  9. OCREVUS [Suspect]
     Active Substance: OCRELIZUMAB
     Indication: RELAPSING-REMITTING MULTIPLE SCLEROSIS
     Dosage: NEXT INFUSION: 12/MAR/2019
     Route: 042
     Dates: start: 20190226
  10. OXYCODON [Concomitant]
     Active Substance: OXYCODONE
     Indication: PAIN
     Dosage: ONGOING : YES, EVERY 4 HOURS PRN FOR PAIN
     Route: 048
     Dates: start: 201806
  11. MAGNESIUM [Concomitant]
     Active Substance: MAGNESIUM
     Indication: MUSCLE SPASMS
     Dosage: ONGOING : YES
     Route: 048
     Dates: start: 201907

REACTIONS (5)
  - Infection [Recovered/Resolved]
  - Bacterial infection [Recovered/Resolved]
  - Cough [Recovered/Resolved]
  - Multiple sclerosis relapse [Recovered/Resolved]
  - Incontinence [Not Recovered/Not Resolved]

NARRATIVE: CASE EVENT DATE: 201904
